FAERS Safety Report 5207281-5 (Version None)
Quarter: 2007Q1

REPORT INFORMATION
  Report Type: 
  Country: None (occurrence: None)
  Receive Date: 20070112
  Receipt Date: 20070108
  Transmission Date: 20070707
  Serious: Yes (Hospitalization)
  Sender: FDA-Public Use
  Company Number: US-BRISTOL-MYERS SQUIBB COMPANY-11794492

PATIENT
  Age: 31 Year
  Sex: Male

DRUGS (7)
  1. FUNGIZONE [Suspect]
     Indication: FUNGAL INFECTION
     Route: 042
     Dates: start: 20011230, end: 20020108
  2. CEFEPIME [Suspect]
  3. AMBISOME [Suspect]
     Indication: FUNGAL INFECTION
     Route: 042
     Dates: end: 20020114
  4. NETILMICIN SULFATE [Suspect]
  5. ARACYTINE [Concomitant]
     Indication: ACUTE MYELOID LEUKAEMIA
  6. NOVANTRONE [Concomitant]
     Indication: ACUTE MYELOID LEUKAEMIA
  7. VEPESID [Concomitant]
     Indication: ACUTE MYELOID LEUKAEMIA

REACTIONS (7)
  - COMA [None]
  - CONFUSIONAL STATE [None]
  - METABOLIC ACIDOSIS [None]
  - NEPHROGENIC DIABETES INSIPIDUS [None]
  - NEUTROPENIA [None]
  - RENAL FAILURE ACUTE [None]
  - RENAL TUBULAR DISORDER [None]
